FAERS Safety Report 5779741-X (Version None)
Quarter: 2008Q2

REPORT INFORMATION
  Report Type: 
  Country: None (occurrence: None)
  Receive Date: 20080617
  Receipt Date: 20080602
  Transmission Date: 20081010
  Serious: Yes (Other)
  Sender: FDA-Public Use
  Company Number: 100#08#2008-03012

PATIENT
  Age: 45 Year
  Sex: Male

DRUGS (1)
  1. HYDROXYCARBAMIDE (HYDROXYCARBAMIDE) [Suspect]
     Indication: ESSENTIAL THROMBOCYTHAEMIA
     Dosage: 500 MG TWICE DAILY

REACTIONS (1)
  - HEPATITIS [None]
